FAERS Safety Report 18926786 (Version 1)
Quarter: 2021Q1

REPORT INFORMATION
  Report Type: Report from Study
  Country: AT (occurrence: AT)
  Receive Date: 20210223
  Receipt Date: 20210223
  Transmission Date: 20210420
  Serious: Yes (Disabling, Other)
  Sender: FDA-Public Use
  Company Number: NVSC2021AT038506

PATIENT
  Age: 73 Year
  Sex: Female
  Weight: 60 kg

DRUGS (3)
  1. INC280 [Suspect]
     Active Substance: CAPMATINIB
     Indication: NON-SMALL CELL LUNG CANCER
     Dosage: 400 MG, BID
     Route: 048
     Dates: start: 20201211, end: 20210208
  2. TRAZODON [Suspect]
     Active Substance: TRAZODONE HYDROCHLORIDE
     Indication: INSOMNIA
     Dosage: 75 MG, QD
     Route: 065
     Dates: start: 20201211
  3. TRAZODON [Suspect]
     Active Substance: TRAZODONE HYDROCHLORIDE
     Indication: DEPRESSION

REACTIONS (4)
  - Alanine aminotransferase increased [Recovering/Resolving]
  - Leukopenia [Not Recovered/Not Resolved]
  - Fatigue [Unknown]
  - Aspartate aminotransferase increased [Recovering/Resolving]

NARRATIVE: CASE EVENT DATE: 20210112
